FAERS Safety Report 4892501-7 (Version None)
Quarter: 2006Q1

REPORT INFORMATION
  Report Type: 
  Country: None (occurrence: None)
  Receive Date: 20060124
  Receipt Date: 20060116
  Transmission Date: 20060701
  Serious: Yes (Death, Other)
  Sender: FDA-Public Use
  Company Number: GXKR2006GB00493

PATIENT
  Age: 25 Year
  Sex: Male
  Weight: 75 kg

DRUGS (5)
  1. CITALOPRAM HYDROBROMIDE [Suspect]
  2. CODEINE (CODEINE) [Suspect]
  3. CYCLIZINE (CYCLIZINE) [Suspect]
  4. ACETAMINOPHEN [Suspect]
  5. ETHANOL (ETHANOL) [Suspect]

REACTIONS (7)
  - ALCOHOL USE [None]
  - ASPIRATION [None]
  - DRUG LEVEL INCREASED [None]
  - DRUG TOXICITY [None]
  - INTENTIONAL OVERDOSE [None]
  - PULMONARY CONGESTION [None]
  - PULMONARY OEDEMA [None]
